FAERS Safety Report 21697872 (Version 1)
Quarter: 2022Q4

REPORT INFORMATION
  Report Type: Spontaneous
  Country: GB (occurrence: GB)
  Receive Date: 20221208
  Receipt Date: 20221208
  Transmission Date: 20230112
  Serious: No
  Sender: FDA-Public Use
  Company Number: None

PATIENT
  Age: 64 Year
  Sex: Female
  Weight: 67.2 kg

DRUGS (4)
  1. TOLVAPTAN [Suspect]
     Active Substance: TOLVAPTAN
     Indication: Congenital cystic kidney disease
     Dosage: 15 MILLIGRAM TABLET (UNCOATED, ORAL)
     Route: 048
     Dates: start: 20181004
  2. TOLVAPTAN [Suspect]
     Active Substance: TOLVAPTAN
     Dosage: 45 MILLIGRAM TABLET (UNCOATED, ORAL)
     Route: 048
     Dates: start: 20181004
  3. SIMVASTATIN [Concomitant]
     Active Substance: SIMVASTATIN
     Indication: Blood cholesterol decreased
     Dosage: 10 MILLIGRAM, QD
     Route: 048
     Dates: start: 20121108
  4. VITAMIN D [Concomitant]
     Active Substance: VITAMIN D NOS
     Indication: Blood calcium increased
     Dosage: 25 MICROGRAM, QD
     Route: 048
     Dates: start: 20181115

REACTIONS (6)
  - Drug intolerance [Recovered/Resolved]
  - Vomiting [Recovered/Resolved]
  - Nocturia [Recovered/Resolved]
  - Diarrhoea [Recovered/Resolved]
  - Decreased appetite [Recovered/Resolved]
  - Oedema [Unknown]

NARRATIVE: CASE EVENT DATE: 20181115
